FAERS Safety Report 6647573-6 (Version None)
Quarter: 2010Q1

REPORT INFORMATION
  Report Type: 
  Country: None (occurrence: None)
  Receive Date: 20100323
  Receipt Date: 20100315
  Transmission Date: 20100710
  Serious: Yes (Death, Other)
  Sender: FDA-Public Use
  Company Number: US-AMGEN-QUU372906

PATIENT
  Sex: Female

DRUGS (12)
  1. ENBREL [Suspect]
     Indication: PSORIASIS
     Route: 058
     Dates: start: 20050331, end: 20090108
  2. SORIATANE [Concomitant]
     Dates: start: 20090925, end: 20091019
  3. ASPIRIN [Concomitant]
  4. SYNTHROID [Concomitant]
  5. LESCOL [Concomitant]
  6. ACTONEL [Concomitant]
  7. VERAPAMIL [Concomitant]
  8. METOPROLOL [Concomitant]
  9. ISOSORBIDE [Concomitant]
  10. HUMIRA [Concomitant]
     Dates: start: 20090115, end: 20090306
  11. OXSORALEN [Concomitant]
  12. GEMFIBROZIL [Concomitant]

REACTIONS (4)
  - ACUTE MYELOID LEUKAEMIA [None]
  - DEATH [None]
  - LYMPHOCYTOSIS [None]
  - WALDENSTROM'S MACROGLOBULINAEMIA [None]
